FAERS Safety Report 19718269 (Version 1)
Quarter: 2021Q3

REPORT INFORMATION
  Report Type: Spontaneous
  Country: US (occurrence: US)
  Receive Date: 20210817
  Receipt Date: 20210817
  Transmission Date: 20211014
  Serious: Yes (Death)
  Sender: FDA-Public Use
  Company Number: None

PATIENT
  Age: 81 Year
  Sex: Female

DRUGS (1)
  1. PROMACTA [Suspect]
     Active Substance: ELTROMBOPAG OLAMINE
     Indication: IMMUNE THROMBOCYTOPENIA
     Dosage: ?          OTHER FREQUENCY:(4 PACKS);?
     Route: 048
     Dates: start: 20210805, end: 20210811

REACTIONS (2)
  - Unresponsive to stimuli [None]
  - Bedridden [None]

NARRATIVE: CASE EVENT DATE: 20210813
